FAERS Safety Report 5033650-2 (Version None)
Quarter: 2006Q2

REPORT INFORMATION
  Report Type: 
  Country: None (occurrence: None)
  Receive Date: 20060623
  Receipt Date: 20060608
  Transmission Date: 20061013
  Serious: Yes (Other)
  Sender: FDA-Public Use
  Company Number: PHEH2006US07508

PATIENT
  Age: 15 Year
  Sex: Male

DRUGS (3)
  1. TRILEPTAL [Concomitant]
     Indication: CONVULSION
     Dosage: 450 MG, UNK
  2. TRILEPTAL [Concomitant]
     Dosage: 300 MG, UNK
     Route: 048
     Dates: start: 20050101
  3. EXJADE [Suspect]
     Indication: BLOOD IRON INCREASED
     Dosage: 750 MG, QD
     Route: 048
     Dates: start: 20060323

REACTIONS (1)
  - CONVULSION [None]
